FAERS Safety Report 8360572-1 (Version None)
Quarter: 2012Q2

REPORT INFORMATION
  Report Type: 
  Country: None (occurrence: None)
  Receive Date: 20120515
  Receipt Date: 20120514
  Transmission Date: 20120825
  Serious: Yes (Life-Threatening, Hospitalization, Other)
  Sender: FDA-Public Use
  Company Number: PHFR2012IE001530

PATIENT
  Sex: Male
  Weight: 59.6 kg

DRUGS (5)
  1. CLOZARIL [Suspect]
     Indication: SCHIZOPHRENIA
     Dosage: 175 MG, DAILY
     Route: 048
     Dates: start: 20120220, end: 20120301
  2. QUETIAPINE [Concomitant]
     Indication: HYPOTENSION
     Dosage: 600 MG, DAILY
     Route: 048
     Dates: start: 20111110, end: 20120301
  3. DEPIXOL [Concomitant]
     Indication: SCHIZOPHRENIA
     Dosage: 600 MG, DAILY
     Route: 030
  4. PROCYCLIDINE HYDROCHLORIDE 2MG TAB [Concomitant]
     Dosage: 5 MG, DAILY
     Route: 048
  5. ARIPIPRAZOLE [Concomitant]
     Indication: SCHIZOPHRENIA
     Dosage: 10 MG, DAILY
     Route: 048
     Dates: start: 20120315

REACTIONS (8)
  - C-REACTIVE PROTEIN INCREASED [None]
  - MYOCARDITIS [None]
  - PYREXIA [None]
  - ELECTROCARDIOGRAM T WAVE ABNORMAL [None]
  - HYPOTENSION [None]
  - MALAISE [None]
  - TACHYCARDIA [None]
  - RESPIRATORY TRACT INFECTION [None]
